FAERS Safety Report 23432246 (Version 8)
Quarter: 2025Q4

REPORT INFORMATION
  Report Type: Report from Study
  Country: JP (occurrence: JP)
  Receive Date: 20240123
  Receipt Date: 20251218
  Transmission Date: 20260117
  Serious: Yes (Other)
  Sender: UCB
  Company Number: JP-UCBSA-2024002835

PATIENT
  Age: 4 Year
  Weight: 20.1 kg

DRUGS (16)
  1. FENFLURAMINE HYDROCHLORIDE [Suspect]
     Active Substance: FENFLURAMINE HYDROCHLORIDE
     Indication: Severe myoclonic epilepsy of infancy
     Dosage: 0.05 MILLIGRAM/KILOGRAM, 2X/DAY (BID)
     Route: 061
  2. FENFLURAMINE HYDROCHLORIDE [Suspect]
     Active Substance: FENFLURAMINE HYDROCHLORIDE
     Dosage: 0.07 MILLIGRAM/KILOGRAM, 2X/DAY (BID)
     Route: 061
  3. FENFLURAMINE HYDROCHLORIDE [Suspect]
     Active Substance: FENFLURAMINE HYDROCHLORIDE
     Dosage: 0.09 MILLIGRAM/KILOGRAM, 2X/DAY (BID)
     Route: 061
  4. FENFLURAMINE HYDROCHLORIDE [Suspect]
     Active Substance: FENFLURAMINE HYDROCHLORIDE
     Dosage: 0.1 MILLIGRAM/KILOGRAM, 2X/DAY (BID)
     Route: 061
  5. FENFLURAMINE HYDROCHLORIDE [Suspect]
     Active Substance: FENFLURAMINE HYDROCHLORIDE
     Dosage: 0.12 MILLIGRAM/KILOGRAM, 2X/DAY (BID)
     Route: 061
  6. FENFLURAMINE HYDROCHLORIDE [Suspect]
     Active Substance: FENFLURAMINE HYDROCHLORIDE
     Dosage: 0.15 MILLIGRAM/KILOGRAM, 2X/DAY (BID)
     Route: 061
  7. FENFLURAMINE HYDROCHLORIDE [Suspect]
     Active Substance: FENFLURAMINE HYDROCHLORIDE
     Dosage: 0.13 MILLIGRAM/KILOGRAM, 2X/DAY (BID)
     Route: 061
  8. FENFLURAMINE HYDROCHLORIDE [Suspect]
     Active Substance: FENFLURAMINE HYDROCHLORIDE
     Dosage: 0.15 MILLIGRAM/KILOGRAM, 2X/DAY (BID)
     Route: 061
  9. FENFLURAMINE HYDROCHLORIDE [Suspect]
     Active Substance: FENFLURAMINE HYDROCHLORIDE
     Dosage: 0.29 MILLIGRAM/KILOGRAM/DAY
     Route: 061
  10. STIRIPENTOL [Concomitant]
     Active Substance: STIRIPENTOL
     Indication: Severe myoclonic epilepsy of infancy
     Dosage: 500 MILLIGRAM/DAY
     Route: 061
  11. LOPEMIN FOR CHILDREN [Concomitant]
     Indication: Product used for unknown indication
     Dosage: 0.3 MILLIGRAM/KILOGRAM, ONCE DAILY (QD)
  12. LOPEMIN FOR CHILDREN [Concomitant]
     Dosage: 2.8 MILLILITER, ONCE DAILY (QD)
  13. VALPROATE SODIUM [Concomitant]
     Active Substance: VALPROATE SODIUM
     Indication: Severe myoclonic epilepsy of infancy
     Dosage: 350 MILLIGRAM/DAY
     Route: 061
  14. VALPROATE SODIUM [Concomitant]
     Active Substance: VALPROATE SODIUM
     Dosage: 400 MILLIGRAM/DAY
     Route: 061
  15. CLOBAZAM [Concomitant]
     Active Substance: CLOBAZAM
     Indication: Severe myoclonic epilepsy of infancy
     Dosage: 4 MILLIGRAM/DAY
     Route: 061
  16. LEVOCARNITINE [Concomitant]
     Active Substance: LEVOCARNITINE
     Indication: Severe myoclonic epilepsy of infancy
     Dosage: 300 MILLIGRAM/DAY
     Route: 061

REACTIONS (10)
  - Febrile status epilepticus [Recovering/Resolving]
  - Generalised tonic-clonic seizure [Recovered/Resolved]
  - Seizure [Unknown]
  - Status epilepticus [Unknown]
  - Diarrhoea [Recovering/Resolving]
  - Pyrexia [Recovering/Resolving]
  - Upper respiratory tract inflammation [Recovering/Resolving]
  - Gastroenteritis [Unknown]
  - Prescribed underdose [Unknown]
  - Off label use [Unknown]
